FAERS Safety Report 19129433 (Version 4)
Quarter: 2021Q2

REPORT INFORMATION
  Report Type: Report from Study
  Country: US (occurrence: US)
  Receive Date: 20210413
  Receipt Date: 20210618
  Transmission Date: 20210717
  Serious: No
  Sender: FDA-Public Use
  Company Number: NVSC2021US082676

PATIENT
  Sex: Male

DRUGS (2)
  1. BEOVU [Suspect]
     Active Substance: BROLUCIZUMAB-DBLL
     Indication: NEOVASCULAR AGE-RELATED MACULAR DEGENERATION
     Dosage: UNK,(EVERY 8 WEEK)
     Route: 047
     Dates: start: 202001
  2. BEOVU [Suspect]
     Active Substance: BROLUCIZUMAB-DBLL
     Dosage: UNK (Q8WKS)
     Route: 031
     Dates: start: 20200130

REACTIONS (6)
  - Hypoacusis [Unknown]
  - Vitreous floaters [Unknown]
  - Metamorphopsia [Unknown]
  - Peripheral vascular disorder [Unknown]
  - Vision blurred [Unknown]
  - Body dysmorphic disorder [Unknown]
